FAERS Safety Report 8311974 (Version 5)
Quarter: 2013Q1

REPORT INFORMATION
  Report Type: Spontaneous
  Country: BR (occurrence: BR)
  Receive Date: 20111227
  Receipt Date: 20130220
  Transmission Date: 20140127
  Serious: Yes (Hospitalization, Other)
  Sender: FDA-Public Use
  Company Number: BR-ROCHE-1025341

PATIENT
  Age: 52 Year
  Sex: Female
  Weight: 89 kg

DRUGS (18)
  1. XOLAIR [Suspect]
     Indication: ASTHMA
     Route: 058
     Dates: start: 20050601
  2. XOLAIR [Suspect]
     Route: 058
     Dates: start: 20090601
  3. XOLAIR [Suspect]
     Route: 065
     Dates: start: 201301
  4. ENALAPRIL [Concomitant]
  5. BUSONID [Concomitant]
  6. SALBUTAMOL [Concomitant]
  7. FUROSEMIDE [Concomitant]
  8. PREDSIM [Concomitant]
     Route: 065
  9. BAMIFIX [Concomitant]
     Route: 065
  10. ACETYLCYSTEINE [Concomitant]
     Route: 065
  11. SINGULAIR [Concomitant]
     Route: 065
  12. SERETIDE [Concomitant]
     Route: 065
  13. SPIRIVA [Concomitant]
     Route: 065
  14. BUDECORT [Concomitant]
     Route: 065
  15. AEROLIN [Concomitant]
     Route: 065
  16. OMEPRAZOLE [Concomitant]
  17. MOTILIUM (BRAZIL) [Concomitant]
  18. PREDNISONE [Concomitant]

REACTIONS (6)
  - Asthma [Recovering/Resolving]
  - Dyspnoea [Recovering/Resolving]
  - Fatigue [Recovering/Resolving]
  - Respiratory disorder [Unknown]
  - Memory impairment [Unknown]
  - Hypertension [Recovering/Resolving]
